FAERS Safety Report 17862747 (Version 2)
Quarter: 2020Q4

REPORT INFORMATION
  Report Type: Spontaneous
  Country: US (occurrence: US)
  Receive Date: 20200605
  Receipt Date: 20201113
  Transmission Date: 20210113
  Serious: Yes (Other)
  Sender: FDA-Public Use
  Company Number: US-LEADINGPHARMA-US-2020LEALIT00089

PATIENT
  Age: 49 Year
  Sex: Female

DRUGS (14)
  1. IMIPRAMINE HCL TABLETS USP [Suspect]
     Active Substance: IMIPRAMINE HYDROCHLORIDE
     Indication: PAIN
     Route: 061
  2. CYCLOBENZAPRINE. [Suspect]
     Active Substance: CYCLOBENZAPRINE
     Indication: PAIN
     Route: 061
  3. LIDOCAINE. [Suspect]
     Active Substance: LIDOCAINE
     Indication: ARTHRALGIA
  4. CYCLOBENZAPRINE. [Suspect]
     Active Substance: CYCLOBENZAPRINE
     Indication: ARTHRALGIA
  5. DICLOFENAC [Suspect]
     Active Substance: DICLOFENAC
     Indication: ARTHRALGIA
  6. LIDOCAINE. [Suspect]
     Active Substance: LIDOCAINE
     Indication: PAIN
     Route: 061
  7. BACLOFEN. [Suspect]
     Active Substance: BACLOFEN
     Indication: ARTHRALGIA
  8. DICLOFENAC [Suspect]
     Active Substance: DICLOFENAC
     Indication: PAIN
     Route: 061
  9. PRILOCAINE [Suspect]
     Active Substance: PRILOCAINE
     Indication: PAIN
     Route: 061
  10. IMIPRAMINE HCL TABLETS USP [Suspect]
     Active Substance: IMIPRAMINE HYDROCHLORIDE
     Indication: ARTHRALGIA
  11. PRILOCAINE [Suspect]
     Active Substance: PRILOCAINE
     Indication: ARTHRALGIA
  12. BACLOFEN. [Suspect]
     Active Substance: BACLOFEN
     Indication: PAIN
     Route: 061
  13. BUPIVACAINE. [Suspect]
     Active Substance: BUPIVACAINE
     Indication: PAIN
     Route: 061
  14. BUPIVACAINE. [Suspect]
     Active Substance: BUPIVACAINE
     Indication: ARTHRALGIA

REACTIONS (7)
  - Product use in unapproved indication [Unknown]
  - Product preparation error [Unknown]
  - Dyspnoea [Unknown]
  - Swelling face [Unknown]
  - Agitation [Unknown]
  - Flushing [Unknown]
  - Disorientation [Unknown]
